FAERS Safety Report 13543328 (Version 1)
Quarter: 2017Q2

REPORT INFORMATION
  Report Type: Report from Study
  Country: CR (occurrence: CR)
  Receive Date: 20170514
  Receipt Date: 20170514
  Transmission Date: 20170830
  Serious: Yes (Other)
  Sender: FDA-Public Use
  Company Number: PHHY2017CR069463

PATIENT
  Age: 58 Year
  Sex: Female

DRUGS (2)
  1. EXFORGE HCT [Suspect]
     Active Substance: AMLODIPINE BESYLATE\HYDROCHLOROTHIAZIDE\VALSARTAN
     Indication: PRODUCT USED FOR UNKNOWN INDICATION
     Dosage: 1 DF (AMLODIPINE 5 MG, HYDROCHLOROTHIAZIDE 12.5 MG, VALSARTAN 160 MG),UNK
     Route: 065
  2. EXFORGE HCT [Suspect]
     Active Substance: AMLODIPINE BESYLATE\HYDROCHLOROTHIAZIDE\VALSARTAN
     Dosage: 1 DF (AMLODIPINE 10 MG, HYDROCHLOROTHIAZIDE 25 MG, VALSARTAN 320 MG), UNK
     Route: 065

REACTIONS (5)
  - Hypertensive crisis [Unknown]
  - Blood potassium decreased [Unknown]
  - Blood pressure increased [Unknown]
  - Muscle spasms [Unknown]
  - Pollakiuria [Unknown]
